FAERS Safety Report 6933783-7 (Version None)
Quarter: 2010Q3

REPORT INFORMATION
  Report Type: 
  Country: None (occurrence: None)
  Receive Date: 20100820
  Receipt Date: 20100812
  Transmission Date: 20110219
  Serious: Yes (Other)
  Sender: FDA-Public Use
  Company Number: US-PURDUE-USA-2010-0045677

PATIENT
  Sex: Female

DRUGS (2)
  1. OXYCONTIN [Suspect]
     Indication: PRODUCT USED FOR UNKNOWN INDICATION
     Route: 048
  2. OPIOIDS [Suspect]
     Indication: PRODUCT USED FOR UNKNOWN INDICATION
     Dosage: UNK

REACTIONS (4)
  - INADEQUATE ANALGESIA [None]
  - MEDICATION RESIDUE [None]
  - SMALL INTESTINAL OBSTRUCTION [None]
  - UNEVALUABLE EVENT [None]
